FAERS Safety Report 18333757 (Version 1)
Quarter: 2020Q4

REPORT INFORMATION
  Report Type: Spontaneous
  Country: PT (occurrence: PT)
  Receive Date: 20201001
  Receipt Date: 20201001
  Transmission Date: 20210113
  Serious: Yes (Hospitalization, Other)
  Sender: FDA-Public Use
  Company Number: PT-AUROBINDO-AUR-APL-2020-041047

PATIENT
  Age: 41 Year
  Sex: Female

DRUGS (3)
  1. CLARITHROMYCIN. [Suspect]
     Active Substance: CLARITHROMYCIN
     Indication: URINARY TRACT INFECTION
     Dosage: 500 MILLIGRAM, TWO TIMES A DAY
     Route: 065
  2. PAROXETINE. [Concomitant]
     Active Substance: PAROXETINE
     Indication: DEPRESSION
     Dosage: 20 MILLIGRAM, ONCE A DAY
     Route: 065
  3. DIAZEPAM. [Concomitant]
     Active Substance: DIAZEPAM
     Indication: DEPRESSION
     Dosage: 10 MILLIGRAM, ONCE A DAY
     Route: 065

REACTIONS (9)
  - Insomnia [Recovered/Resolved]
  - Anosognosia [Recovered/Resolved]
  - Pressure of speech [Recovered/Resolved]
  - Abnormal behaviour [Recovered/Resolved]
  - Delusion [Recovered/Resolved]
  - Delusion of grandeur [Recovered/Resolved]
  - Psychomotor hyperactivity [Recovered/Resolved]
  - Mania [Recovered/Resolved]
  - Hostility [Recovered/Resolved]
